FAERS Safety Report 4361264-6 (Version None)
Quarter: 2004Q2

REPORT INFORMATION
  Report Type: 
  Country: None (occurrence: None)
  Receive Date: 20040520
  Receipt Date: 20040517
  Transmission Date: 20050107
  Serious: Yes (Hospitalization)
  Sender: FDA-Public Use
  Company Number: GBPFL-C-20040008

PATIENT
  Age: 77 Year
  Sex: Female

DRUGS (2)
  1. NAVELBINE [Suspect]
     Dosage: 30MGM2 CYCLIC
     Route: 042
     Dates: start: 20040106
  2. MORPHINE SULFATE [Concomitant]

REACTIONS (4)
  - CONFUSIONAL STATE [None]
  - NEUTROPENIA [None]
  - NEUTROPENIC SEPSIS [None]
  - PYREXIA [None]
